FAERS Safety Report 7374773-2 (Version None)
Quarter: 2011Q1

REPORT INFORMATION
  Report Type: 
  Country: None (occurrence: None)
  Receive Date: 20110325
  Receipt Date: 20101027
  Transmission Date: 20110831
  Serious: No
  Sender: FDA-Public Use
  Company Number: US-MYLANLABS-2010S1019921

PATIENT
  Age: 62 Year
  Sex: Female

DRUGS (4)
  1. LEXAPRO [Concomitant]
     Indication: DEPRESSION
  2. LOPRESSOR [Concomitant]
     Indication: BLOOD PRESSURE INCREASED
  3. FENTANYL-100 [Suspect]
     Indication: FIBROMYALGIA
     Dosage: Q 72 HOURS
     Route: 062
     Dates: start: 20100101
  4. METOPROLOL [Concomitant]
     Indication: BLOOD PRESSURE INCREASED

REACTIONS (5)
  - FATIGUE [None]
  - SOMNOLENCE [None]
  - DEPRESSION [None]
  - PARAESTHESIA [None]
  - IRRITABILITY [None]
